FAERS Safety Report 7333058-0 (Version None)
Quarter: 2011Q1

REPORT INFORMATION
  Report Type: 
  Country: None (occurrence: None)
  Receive Date: 20110304
  Receipt Date: 20110302
  Transmission Date: 20110831
  Serious: No
  Sender: FDA-Public Use
  Company Number: US-PFIZER INC-2011046433

PATIENT
  Sex: Male
  Weight: 65.76 kg

DRUGS (6)
  1. CADUET [Suspect]
     Indication: BLOOD CHOLESTEROL INCREASED
     Dosage: [AMLODIPINE 5 MG] / [ATORVASTATIN 40 MG] ONCE DAILY
     Route: 048
     Dates: start: 20090101
  2. CADUET [Suspect]
     Indication: HYPERTENSION
  3. LISINOPRIL [Concomitant]
     Dosage: UNK
  4. ZIAC [Concomitant]
     Dosage: UNK
  5. METOPROLOL [Concomitant]
     Dosage: UNK
  6. SYNTHROID [Concomitant]
     Dosage: UNK

REACTIONS (1)
  - MYALGIA [None]
